FAERS Safety Report 4539980-2 (Version None)
Quarter: 2004Q4

REPORT INFORMATION
  Report Type: 
  Country: None (occurrence: None)
  Receive Date: 20041223
  Receipt Date: 20041208
  Transmission Date: 20050328
  Serious: Yes (Hospitalization, Other)
  Sender: FDA-Public Use
  Company Number: 2004BI001250

PATIENT
  Age: 48 Year
  Sex: Female
  Weight: 99.7913 kg

DRUGS (9)
  1. AVONEX [Suspect]
     Indication: MULTIPLE SCLEROSIS
     Dosage: 30 UG ; QW; IM
     Route: 030
     Dates: start: 19990101, end: 20030101
  2. LOPRESSOR [Concomitant]
  3. HYDRODIURIL [Concomitant]
  4. REGULAR INSULIN [Concomitant]
  5. ISOPHANE INSULIN [Concomitant]
  6. LIPITOR [Concomitant]
  7. GEMCOR [Concomitant]
  8. CORTONE [Concomitant]
  9. GLUCOPHAGE [Concomitant]

REACTIONS (7)
  - FRACTURED SACRUM [None]
  - HEADACHE [None]
  - HEPATIC STEATOSIS [None]
  - LIVER FUNCTION TEST ABNORMAL [None]
  - RIB FRACTURE [None]
  - ROAD TRAFFIC ACCIDENT [None]
  - SLEEP DISORDER [None]
